FAERS Safety Report 22850605 (Version 7)
Quarter: 2024Q1

REPORT INFORMATION
  Report Type: Spontaneous
  Country: US (occurrence: US)
  Receive Date: 20230822
  Receipt Date: 20240124
  Transmission Date: 20240409
  Serious: No
  Sender: FDA-Public Use
  Company Number: US-PFIZER INC-PV202300139017

PATIENT
  Age: 6 Year
  Sex: Male
  Weight: 16.33 kg

DRUGS (2)
  1. GENOTROPIN [Suspect]
     Active Substance: SOMATROPIN
     Indication: Blood growth hormone
     Dosage: 0.5 MG, DAILY
  2. GENOTROPIN [Suspect]
     Active Substance: SOMATROPIN
     Dosage: 0.6 MG, DAILY (EVERY NIGHT)

REACTIONS (6)
  - Device use error [Unknown]
  - Device use issue [Unknown]
  - Device mechanical issue [Unknown]
  - Device information output issue [Unknown]
  - Device malfunction [Not Recovered/Not Resolved]
  - Crying [Unknown]
